FAERS Safety Report 5836522-6 (Version None)
Quarter: 2008Q3

REPORT INFORMATION
  Report Type: 
  Country: None (occurrence: None)
  Receive Date: 20080807
  Receipt Date: 20080730
  Transmission Date: 20090109
  Serious: Yes (Hospitalization)
  Sender: FDA-Public Use
  Company Number: JP-ABBOTT-08P-087-0467485-00

PATIENT
  Age: 32 Year
  Sex: Female

DRUGS (3)
  1. LOPINAVIR AND RITONAVIR [Suspect]
     Indication: HIV INFECTION
     Dosage: NOT REPORTED
  2. ZIDOVUDINE [Suspect]
     Indication: HIV INFECTION
     Dosage: NOT REPORTED
     Route: 048
  3. ZIDOVUDINE [Suspect]
     Dosage: NOT REPORTED
     Route: 042

REACTIONS (4)
  - HEPATIC FUNCTION ABNORMAL [None]
  - HYPERTENSION [None]
  - PLATELET COUNT DECREASED [None]
  - PROTEIN URINE PRESENT [None]
